FAERS Safety Report 14250087 (Version 1)
Quarter: 2017Q4

REPORT INFORMATION
  Report Type: Spontaneous
  Country: US (occurrence: US)
  Receive Date: 20171205
  Receipt Date: 20171205
  Transmission Date: 20180321
  Serious: Yes (Hospitalization, Other)
  Sender: FDA-Public Use
  Company Number: US-VISTAPHARM, INC.-VER201711-001173

PATIENT
  Age: 47 Year
  Sex: Female

DRUGS (20)
  1. WARFARIN [Suspect]
     Active Substance: WARFARIN
     Indication: DEEP VEIN THROMBOSIS
  2. ACETAMINOPHEN. [Concomitant]
     Active Substance: ACETAMINOPHEN
  3. WARFARIN [Suspect]
     Active Substance: WARFARIN
  4. CIPROFLOXACIN. [Concomitant]
     Active Substance: CIPROFLOXACIN
  5. ESOMEPRAZOLE [Concomitant]
     Active Substance: ESOMEPRAZOLE
  6. WARFARIN [Suspect]
     Active Substance: WARFARIN
  7. MIRTAZAPINE. [Concomitant]
     Active Substance: MIRTAZAPINE
  8. FLUOXETINE [Concomitant]
     Active Substance: FLUOXETINE HYDROCHLORIDE
  9. TRAZODONE [Concomitant]
     Active Substance: TRAZODONE HYDROCHLORIDE
  10. PHENYTOIN. [Suspect]
     Active Substance: PHENYTOIN
     Indication: SEIZURE
     Route: 048
  11. WARFARIN [Suspect]
     Active Substance: WARFARIN
  12. WARFARIN [Suspect]
     Active Substance: WARFARIN
  13. WARFARIN [Suspect]
     Active Substance: WARFARIN
  14. TRAMADOL. [Concomitant]
     Active Substance: TRAMADOL
  15. METRONIDAZOLE. [Concomitant]
     Active Substance: METRONIDAZOLE
  16. SERTRALINE [Concomitant]
     Active Substance: SERTRALINE HYDROCHLORIDE
  17. ENOXAPARIN [Concomitant]
     Active Substance: ENOXAPARIN
     Indication: DEEP VEIN THROMBOSIS
     Route: 058
  18. WARFARIN [Suspect]
     Active Substance: WARFARIN
  19. ATENOLOL. [Concomitant]
     Active Substance: ATENOLOL
  20. DULOXETINE. [Concomitant]
     Active Substance: DULOXETINE

REACTIONS (8)
  - Aspartate aminotransferase increased [Unknown]
  - Gamma-glutamyltransferase increased [Unknown]
  - Anticoagulation drug level below therapeutic [Recovered/Resolved]
  - Drug interaction [Unknown]
  - Alanine aminotransferase increased [Unknown]
  - Blood alkaline phosphatase increased [Unknown]
  - International normalised ratio fluctuation [Recovered/Resolved]
  - Purple glove syndrome [Unknown]
